FAERS Safety Report 10893143 (Version 1)
Quarter: 2015Q1

REPORT INFORMATION
  Report Type: Spontaneous
  Country: US (occurrence: US)
  Receive Date: 20150306
  Receipt Date: 20150306
  Transmission Date: 20150721
  Serious: Yes (Other)
  Sender: FDA-Public Use
  Company Number: US-INCYTE CORPORATION-2015IN000845

PATIENT
  Age: 74 Year
  Sex: Male

DRUGS (7)
  1. JAKAFI [Suspect]
     Active Substance: RUXOLITINIB
     Dosage: 15 MG, BID
     Dates: start: 201501
  2. LEVOFLOXACIN. [Concomitant]
     Active Substance: LEVOFLOXACIN
  3. METOPROLOL [Concomitant]
     Active Substance: METOPROLOL
  4. BABY ASPIRIN [Concomitant]
     Active Substance: ASPIRIN
  5. MULTIVITAMIN                       /00097801/ [Concomitant]
     Active Substance: VITAMINS
  6. HYDREA [Concomitant]
     Active Substance: HYDROXYUREA
     Dosage: 2 PER DAY
  7. HYDREA [Concomitant]
     Active Substance: HYDROXYUREA
     Dosage: 6 PER DAY

REACTIONS (2)
  - Nasopharyngitis [Unknown]
  - White blood cell count increased [Unknown]

NARRATIVE: CASE EVENT DATE: 201502
